FAERS Safety Report 16222900 (Version 4)
Quarter: 2022Q2

REPORT INFORMATION
  Report Type: Spontaneous
  Country: US (occurrence: US)
  Receive Date: 20190422
  Receipt Date: 20220502
  Transmission Date: 20220721
  Serious: No
  Sender: FDA-Public Use
  Company Number: US-PFIZER INC-2018497212

PATIENT
  Age: 59 Year
  Sex: Male
  Weight: 106.5 kg

DRUGS (3)
  1. LYRICA [Suspect]
     Active Substance: PREGABALIN
     Indication: Neuralgia
     Dosage: 150 MG, 2X/DAY (1 CAPSULE BY MOUTH TWICE A DAY 12 HOURS APART)
     Route: 048
     Dates: start: 2016
  2. LYRICA [Suspect]
     Active Substance: PREGABALIN
     Indication: Multiple sclerosis
  3. OCREVUS [Concomitant]
     Active Substance: OCRELIZUMAB
     Indication: Multiple sclerosis
     Dosage: UNK

REACTIONS (4)
  - Therapeutic product effect incomplete [Unknown]
  - Blood pressure increased [Unknown]
  - Panic reaction [Unknown]
  - Anxiety [Unknown]
